FAERS Safety Report 12728343 (Version 2)
Quarter: 2016Q3

REPORT INFORMATION
  Report Type: Spontaneous
  Country: JP (occurrence: JP)
  Receive Date: 20160909
  Receipt Date: 20160913
  Transmission Date: 20161109
  Serious: Yes (Other)
  Sender: FDA-Public Use
  Company Number: JP-009507513-1609JPN003014

PATIENT

DRUGS (3)
  1. TELAPREVIR [Suspect]
     Active Substance: TELAPREVIR
     Indication: HEPATITIS C
     Dosage: 1500 MG OR 2250 MG, 1 IN 1 DAY
     Route: 048
  2. PEGINTERFERON ALFA-2B [Suspect]
     Active Substance: PEGINTERFERON ALFA-2B
     Indication: HEPATITIS C
     Dosage: 1.5MCG/KG ONCE A WEEK
     Route: 058
  3. RIBAVIRIN. [Suspect]
     Active Substance: RIBAVIRIN
     Indication: HEPATITIS C
     Dosage: 600-1000MG DAILY
     Route: 048

REACTIONS (10)
  - Gastrointestinal disorder [Unknown]
  - Product quality issue [Unknown]
  - Hepatitis C [Unknown]
  - Viral load increased [Unknown]
  - Retinopathy [Unknown]
  - Off label use [Unknown]
  - Treatment noncompliance [Unknown]
  - Renal impairment [Unknown]
  - Dermatitis [Unknown]
  - Treatment failure [Unknown]
